FAERS Safety Report 5479924-2 (Version None)
Quarter: 2007Q4

REPORT INFORMATION
  Report Type: 
  Country: None (occurrence: None)
  Receive Date: 20071008
  Receipt Date: 20071003
  Transmission Date: 20080405
  Serious: Yes (Hospitalization, Disabling)
  Sender: FDA-Public Use
  Company Number: GB-BOEHRINGER INGELHEIM PHARMACEUTICALS, INC.-2006-UK-04037UK

PATIENT
  Age: 29 Year
  Sex: Female

DRUGS (2)
  1. VIRAMUNE [Suspect]
     Indication: HIV INFECTION
     Dates: start: 20030901
  2. COMBIVIR [Suspect]
     Indication: HIV INFECTION
     Dates: start: 20030901

REACTIONS (7)
  - CONDITION AGGRAVATED [None]
  - DYSPNOEA EXERTIONAL [None]
  - HAEMOPTYSIS [None]
  - IMMUNE RECONSTITUTION SYNDROME [None]
  - INFECTION [None]
  - LYMPHOEDEMA [None]
  - SKIN ULCER [None]
